FAERS Safety Report 8419362-3 (Version None)
Quarter: 2012Q2

REPORT INFORMATION
  Report Type: 
  Country: None (occurrence: None)
  Receive Date: 20120607
  Receipt Date: 20120604
  Transmission Date: 20120825
  Serious: No
  Sender: FDA-Public Use
  Company Number: US-PFIZER INC-2012134603

PATIENT

DRUGS (6)
  1. ZOLOFT [Suspect]
     Dosage: UNK
  2. CELEXA [Suspect]
     Dosage: UNK
  3. NEFAZODONE HCL [Suspect]
     Dosage: UNK
  4. WELLBUTRIN [Suspect]
     Dosage: UNK
  5. REMERON [Suspect]
     Indication: DEPRESSION
     Dosage: UNK
  6. VIIBRYD [Suspect]
     Dosage: UNK

REACTIONS (4)
  - LOSS OF LIBIDO [None]
  - ANORGASMIA [None]
  - ANXIETY [None]
  - DRUG INTOLERANCE [None]
